FAERS Safety Report 24148511 (Version 12)
Quarter: 2025Q1

REPORT INFORMATION
  Report Type: Spontaneous
  Country: US (occurrence: US)
  Receive Date: 20240729
  Receipt Date: 20250327
  Transmission Date: 20250409
  Serious: Yes (Hospitalization, Other)
  Sender: KARYOPHARM THERAPEUTICS
  Company Number: US-KARYOPHARM-2024KPT001234

PATIENT

DRUGS (18)
  1. XPOVIO [Suspect]
     Active Substance: SELINEXOR
     Indication: Plasma cell myeloma
     Route: 048
     Dates: start: 2024
  2. XPOVIO [Suspect]
     Active Substance: SELINEXOR
     Route: 048
     Dates: start: 202401, end: 2024
  3. ACYCLOVIR [Concomitant]
     Active Substance: ACYCLOVIR
  4. AMOXICILLIN [Concomitant]
     Active Substance: AMOXICILLIN
  5. CICLOPIROX [Concomitant]
     Active Substance: CICLOPIROX
  6. OLAMINE [ALOE VERA EXTRACT] [Concomitant]
  7. ELIQUIS [Concomitant]
     Active Substance: APIXABAN
  8. FAMOTIDINE [Concomitant]
     Active Substance: FAMOTIDINE
  9. FOLIC ACID [Concomitant]
     Active Substance: FOLIC ACID
  10. KYPROLIS [Concomitant]
     Active Substance: CARFILZOMIB
     Route: 042
  11. METOPROLOL [Concomitant]
     Active Substance: METOPROLOL
  12. OMEPRAZOLE [Concomitant]
     Active Substance: OMEPRAZOLE
  13. ZOFRAN [Concomitant]
     Active Substance: ONDANSETRON HYDROCHLORIDE
  14. PREVALITE [Concomitant]
     Active Substance: CHOLESTYRAMINE
  15. PROCTOZONE HC [Concomitant]
     Active Substance: HYDROCORTISONE
  16. TORSEMIDE [Concomitant]
     Active Substance: TORSEMIDE
  17. ZOLEDRONIC ACID [Concomitant]
     Active Substance: ZOLEDRONIC ACID
     Route: 042
  18. FLUOROMETHOLONE [Concomitant]
     Active Substance: FLUOROMETHOLONE

REACTIONS (9)
  - Hip fracture [Recovering/Resolving]
  - Fall [Unknown]
  - Productive cough [Unknown]
  - Malaise [Not Recovered/Not Resolved]
  - Headache [Not Recovered/Not Resolved]
  - Pulpless tooth [Not Recovered/Not Resolved]
  - Decreased appetite [Not Recovered/Not Resolved]
  - Nausea [Not Recovered/Not Resolved]
  - Vomiting [Unknown]

NARRATIVE: CASE EVENT DATE: 20240101
